FAERS Safety Report 4349471-X (Version None)
Quarter: 2004Q2

REPORT INFORMATION
  Report Type: 
  Country: None (occurrence: None)
  Receive Date: 20040426
  Receipt Date: 20040415
  Transmission Date: 20050107
  Serious: Yes (Hospitalization, Other)
  Sender: FDA-Public Use
  Company Number: 032-0981-M0000011

PATIENT
  Age: 70 Year
  Sex: Male
  Weight: 78 kg

DRUGS (7)
  1. ATORVASTATIN CALCIUM [Suspect]
     Indication: CORONARY ARTERY DISEASE
     Dosage: 10 MG (DAILY), ORAL
     Route: 048
     Dates: start: 19981207, end: 19990201
  2. ATORVASTATIN CALCIUM [Suspect]
     Indication: CORONARY ARTERY DISEASE
     Dosage: 10 MG (DAILY), ORAL
     Route: 048
     Dates: start: 19990202
  3. ACETYLSALICYLIC ACID                1(ACETYLSALICYLIC ACID) [Concomitant]
  4. ALDACTAZIDE [Concomitant]
  5. LOSARTAN (LOSARTAN) [Concomitant]
  6. HYDERGIN ^SANDOZ^ (DIHYDROERGOCRYPTINE MESILATE, DIHYDROERGOCORNINE ME [Concomitant]
  7. POTASSIUM CHLORIDE [Concomitant]

REACTIONS (5)
  - ATRIAL FIBRILLATION [None]
  - CHEST PAIN [None]
  - GASTRIC DISORDER [None]
  - REFLUX OESOPHAGITIS [None]
  - VOMITING [None]
